FAERS Safety Report 14786638 (Version 2)
Quarter: 2018Q2

REPORT INFORMATION
  Report Type: Report from Study
  Country: US (occurrence: US)
  Receive Date: 20180420
  Receipt Date: 20180611
  Transmission Date: 20180711
  Serious: No
  Sender: FDA-Public Use
  Company Number: US-SA-2018SA097177

PATIENT
  Age: 67 Year
  Sex: Female

DRUGS (4)
  1. METHOTREXATE. [Suspect]
     Active Substance: METHOTREXATE
     Dosage: UNK UNK,UNK
     Route: 065
  2. SARILUMAB [Suspect]
     Active Substance: SARILUMAB
     Dosage: 200 UNK
     Route: 065
     Dates: start: 2018, end: 20180323
  3. SARILUMAB [Suspect]
     Active Substance: SARILUMAB
     Dosage: 200 UNK
     Route: 065
     Dates: start: 20180506, end: 201805
  4. SARILUMAB [Suspect]
     Active Substance: SARILUMAB
     Indication: RHEUMATOID ARTHRITIS
     Dosage: 150 MG, QOW
     Route: 058
     Dates: start: 2018

REACTIONS (8)
  - Blood gases abnormal [Unknown]
  - Herpes zoster [Unknown]
  - Headache [Unknown]
  - Hepatic enzyme abnormal [Unknown]
  - Oral pain [Recovered/Resolved]
  - Cough [Unknown]
  - Gingival bleeding [Unknown]
  - Discharge [Unknown]

NARRATIVE: CASE EVENT DATE: 201805
